FAERS Safety Report 12877223 (Version 2)
Quarter: 2016Q4

REPORT INFORMATION
  Report Type: Report from Study
  Country: JP (occurrence: JP)
  Receive Date: 20161024
  Receipt Date: 20161212
  Transmission Date: 20170207
  Serious: Yes (Hospitalization, Other)
  Sender: FDA-Public Use
  Company Number: PHJP2016JP029577

PATIENT
  Age: 50 Year
  Sex: Male

DRUGS (8)
  1. TRAMETINIB [Suspect]
     Active Substance: TRAMETINIB
     Indication: MALIGNANT MELANOMA
     Dosage: 2 MG, QD
     Route: 048
     Dates: start: 20160607
  2. TRAMETINIB [Suspect]
     Active Substance: TRAMETINIB
     Dosage: 1.5 MG, QD
     Route: 048
  3. TAFINLAR [Suspect]
     Active Substance: DABRAFENIB MESYLATE
     Dosage: 200 MG, QD
     Route: 048
  4. TRAMETINIB [Suspect]
     Active Substance: TRAMETINIB
     Dosage: 1.5 MG, QD
     Route: 048
  5. TAFINLAR [Suspect]
     Active Substance: DABRAFENIB MESYLATE
     Dosage: 300 MG, QD
     Route: 048
     Dates: end: 201611
  6. TRAMETINIB [Suspect]
     Active Substance: TRAMETINIB
     Dosage: 2 MG, QD
     Route: 048
     Dates: end: 201611
  7. TAFINLAR [Suspect]
     Active Substance: DABRAFENIB MESYLATE
     Indication: MALIGNANT MELANOMA
     Dosage: 300 MG, QD
     Route: 048
     Dates: start: 20160607
  8. TAFINLAR [Suspect]
     Active Substance: DABRAFENIB MESYLATE
     Dosage: 200 MG, QD
     Route: 048
     Dates: start: 201607

REACTIONS (15)
  - Pancytopenia [Unknown]
  - Malignant neoplasm progression [Unknown]
  - Blood creatine phosphokinase increased [Unknown]
  - Coagulopathy [Unknown]
  - Lymphocyte count abnormal [Unknown]
  - Hepatic function abnormal [Unknown]
  - Pyrexia [Unknown]
  - Disseminated intravascular coagulation [Not Recovered/Not Resolved]
  - Renal impairment [Unknown]
  - Thrombosis [Recovered/Resolved]
  - Activated partial thromboplastin time prolonged [Unknown]
  - Blood potassium increased [Unknown]
  - Diarrhoea [Unknown]
  - Malaise [Unknown]
  - Platelet count decreased [Unknown]

NARRATIVE: CASE EVENT DATE: 20160620
